FAERS Safety Report 11270203 (Version 1)
Quarter: 2015Q3

REPORT INFORMATION
  Report Type: Spontaneous
  Country: GB (occurrence: GB)
  Receive Date: 20150714
  Receipt Date: 20150714
  Transmission Date: 20151125
  Serious: Yes (Other)
  Sender: FDA-Public Use
  Company Number: GB-BAXTER-2015BAX037473

PATIENT
  Age: 86 Year
  Sex: Female

DRUGS (5)
  1. GLUCOSE 10% W/V SOLUTION FOR INFUSION BP [Concomitant]
     Indication: PRODUCT USED FOR UNKNOWN INDICATION
     Route: 065
     Dates: start: 20150411
  2. HUMAN ACTRAPID [Suspect]
     Active Substance: INSULIN HUMAN
     Indication: PRODUCT USED FOR UNKNOWN INDICATION
     Route: 065
     Dates: start: 20150421
  3. HUMAN ACTRAPID [Concomitant]
     Active Substance: INSULIN HUMAN
     Indication: PRODUCT USED FOR UNKNOWN INDICATION
     Route: 065
     Dates: start: 20150411
  4. GLUCOSE 10% W/V SOLUTION FOR INFUSION BP [Suspect]
     Active Substance: DEXTROSE
     Indication: PRODUCT USED FOR UNKNOWN INDICATION
     Route: 065
     Dates: start: 20150421
  5. HUMAN ACTRAPID [Concomitant]
     Active Substance: INSULIN HUMAN
     Route: 065
     Dates: start: 20150411

REACTIONS (2)
  - Accidental overdose [Unknown]
  - Hypoglycaemia [Unknown]
